FAERS Safety Report 17476999 (Version 1)
Quarter: 2020Q1

REPORT INFORMATION
  Report Type: Report from Study
  Country: CA (occurrence: CA)
  Receive Date: 20200228
  Receipt Date: 20200228
  Transmission Date: 20200409
  Serious: Yes (Other)
  Sender: FDA-Public Use
  Company Number: CA-JNJFOC-20190915449

PATIENT
  Age: 32 Year
  Sex: Male

DRUGS (2)
  1. STELARA [Suspect]
     Active Substance: USTEKINUMAB
     Dosage: STRENGTH = 90 MG
     Route: 058
  2. STELARA [Suspect]
     Active Substance: USTEKINUMAB
     Indication: CROHN^S DISEASE
     Route: 042
     Dates: start: 20190830

REACTIONS (6)
  - Tooth infection [Unknown]
  - Oropharyngeal pain [Unknown]
  - Nerve compression [Unknown]
  - Nasal congestion [Unknown]
  - Vomiting [Unknown]
  - Tooth fracture [Unknown]

NARRATIVE: CASE EVENT DATE: 20190831
